FAERS Safety Report 5202276-X (Version None)
Quarter: 2007Q1

REPORT INFORMATION
  Report Type: 
  Country: None (occurrence: None)
  Receive Date: 20070109
  Receipt Date: 20061227
  Transmission Date: 20070707
  Serious: Yes (Other)
  Sender: FDA-Public Use
  Company Number: AU-GLAXOSMITHKLINE-B0452788A

PATIENT
  Age: 3 Year
  Sex: Male

DRUGS (13)
  1. MELPHALAN [Suspect]
     Indication: NEUROBLASTOMA
     Dosage: 100MGM2 SINGLE DOSE
     Route: 065
  2. SULFAMETHOXAZOLE AND TRIMETHOPRIM [Suspect]
     Route: 065
  3. FRUSEMIDE [Suspect]
     Route: 065
  4. ONDANSETRON [Suspect]
     Route: 065
  5. RETINOIC ACID [Suspect]
     Route: 065
  6. OMEPRAZOLE [Suspect]
     Route: 065
  7. BUSULPHAN [Suspect]
     Indication: NEUROBLASTOMA
     Dosage: 150MGM2 CYCLIC
     Route: 048
  8. FLUCONAZOLE [Concomitant]
     Route: 065
  9. GENTAMICIN [Concomitant]
     Route: 065
  10. TICARCILLIN + CLAVULANIC ACID [Concomitant]
     Route: 065
  11. CEPHALOTHIN [Concomitant]
     Route: 065
  12. CIDOFOVIR [Concomitant]
     Route: 065
  13. PROBENECID [Concomitant]
     Route: 065

REACTIONS (8)
  - ABDOMINAL PAIN [None]
  - BLOOD AMYLASE INCREASED [None]
  - DIARRHOEA [None]
  - LIPASE INCREASED [None]
  - OEDEMATOUS PANCREATITIS [None]
  - PANCREATITIS [None]
  - SEPSIS [None]
  - STENOTROPHOMONAS INFECTION [None]
